FAERS Safety Report 26059263 (Version 1)
Quarter: 2025Q4

REPORT INFORMATION
  Report Type: Spontaneous
  Country: US (occurrence: None)
  Receive Date: 20251117
  Receipt Date: 20251117
  Transmission Date: 20260118
  Serious: Yes (unspecified)
  Sender: FDA-CTU
  Company Number: None

PATIENT
  Age: 49 Year
  Sex: Female
  Weight: 39.92 kg

DRUGS (8)
  1. DUPIXENT [Suspect]
     Active Substance: DUPILUMAB
     Indication: Asthma
     Dosage: OTHER QUANTITY : ONCE;?FREQUENCY : EVERY OTHER WEEK;?OTHER ROUTE : INJECTION (SUBCUTANEOUS);?
     Route: 050
     Dates: start: 20250626, end: 20250807
  2. Vitaminh D3 [Concomitant]
  3. IPRATROPIUM BROMIDE AND ALBUTEROL SULFATE [Concomitant]
     Active Substance: ALBUTEROL SULFATE\IPRATROPIUM BROMIDE
  4. Sulfate Inhalation solution [Concomitant]
  5. BUDESONIDE [Concomitant]
     Active Substance: BUDESONIDE
  6. Abulerto Sulfate Inhaler [Concomitant]
  7. FAMOTIDINE [Concomitant]
     Active Substance: FAMOTIDINE
  8. SODIUM CHLORIDE [Concomitant]
     Active Substance: SODIUM CHLORIDE

REACTIONS (10)
  - Erythema [None]
  - Eye pruritus [None]
  - Dry eye [None]
  - Lacrimation decreased [None]
  - Abdominal pain upper [None]
  - Eye haemorrhage [None]
  - Pruritus [None]
  - Ocular hyperaemia [None]
  - Visual impairment [None]
  - Skin disorder [None]

NARRATIVE: CASE EVENT DATE: 20250810
